FAERS Safety Report 9097419 (Version 4)
Quarter: 2014Q3

REPORT INFORMATION
  Report Type: Report from Study
  Country: FI (occurrence: FI)
  Receive Date: 20130212
  Receipt Date: 20140725
  Transmission Date: 20150326
  Serious: Yes (Hospitalization)
  Sender: FDA-Public Use
  Company Number: FI-ELI_LILLY_AND_COMPANY-FI201302000746

PATIENT
  Sex: Female

DRUGS (5)
  1. KLEXANE [Concomitant]
     Active Substance: ENOXAPARIN
  2. DAXON [Concomitant]
  3. FURESIS [Concomitant]
     Active Substance: FUROSEMIDE
     Indication: POLYURIA
  4. TERIPARATIDE [Suspect]
     Active Substance: TERIPARATIDE
     Indication: OSTEOPOROSIS
     Dosage: 20 UG, QD
     Route: 058
     Dates: start: 20120914
  5. CORTISONE [Concomitant]
     Active Substance: CORTISONE\HYDROCORTISONE

REACTIONS (4)
  - Urinary tract infection [Unknown]
  - Inflammatory marker increased [Unknown]
  - Gallbladder disorder [Not Recovered/Not Resolved]
  - Back pain [Unknown]
